FAERS Safety Report 20997728 (Version 1)
Quarter: 2022Q2

REPORT INFORMATION
  Report Type: Other
  Country: JP (occurrence: JP)
  Receive Date: 20220623
  Receipt Date: 20220623
  Transmission Date: 20220721
  Serious: Yes (Life-Threatening, Hospitalization)
  Sender: FDA-Public Use
  Company Number: JP-CHUGAI-2021021145

PATIENT
  Age: 74 Year
  Sex: Male
  Weight: 61.8 kg

DRUGS (7)
  1. POLATUZUMAB VEDOTIN [Suspect]
     Active Substance: POLATUZUMAB VEDOTIN
     Indication: Diffuse large B-cell lymphoma
     Dosage: 1.8 MILLIGRAM/KILOGRAM, ONCE/3WEEKS?MOST RECENT DOSE: 15/SEP/2021
     Route: 041
     Dates: start: 20210826
  2. RITUXIMAB [Suspect]
     Active Substance: RITUXIMAB
     Indication: Diffuse large B-cell lymphoma
     Dosage: 375 MILLIGRAM/SQ. METER, ONCE/3WEEKS?MOST RECENT DOSE: 15/SEP/2021
     Route: 041
     Dates: start: 20210825
  3. BENDAMUSTINE HYDROCHLORIDE [Suspect]
     Active Substance: BENDAMUSTINE HYDROCHLORIDE
     Indication: Diffuse large B-cell lymphoma
     Dosage: 90 MILLIGRAM/SQ. METER, QD
     Route: 041
     Dates: start: 20210826, end: 20210826
  4. BENDAMUSTINE HYDROCHLORIDE [Suspect]
     Active Substance: BENDAMUSTINE HYDROCHLORIDE
     Dosage: 50 MILLIGRAM/SQ. METER, QD?MOST RECENT DOSE: 17/SEP/2021
     Route: 065
     Dates: start: 20210917
  5. SULFAMETHOXAZOLE\TRIMETHOPRIM [Concomitant]
     Active Substance: SULFAMETHOXAZOLE\TRIMETHOPRIM
     Indication: Infection prophylaxis
     Dosage: UNK
     Route: 065
  6. ACYCLOVIR [Concomitant]
     Active Substance: ACYCLOVIR
     Indication: Infection prophylaxis
     Dosage: UNK
     Route: 065
  7. FLUCONAZOLE [Concomitant]
     Active Substance: FLUCONAZOLE
     Indication: Infection prophylaxis
     Dosage: UNK
     Route: 065

REACTIONS (4)
  - Neutrophil count decreased [Recovered/Resolved]
  - Lymphocyte count abnormal [Recovered/Resolved]
  - Rash [Recovering/Resolving]
  - Drug ineffective [Unknown]

NARRATIVE: CASE EVENT DATE: 20210929
